FAERS Safety Report 13420523 (Version 1)
Quarter: 2017Q2

REPORT INFORMATION
  Report Type: Spontaneous
  Country: US (occurrence: US)
  Receive Date: 20170407
  Receipt Date: 20170407
  Transmission Date: 20170830
  Serious: No
  Sender: FDA-Public Use
  Company Number: US-TEVA-749401ACC

PATIENT
  Age: 50 Year
  Sex: Female
  Weight: 47.67 kg

DRUGS (1)
  1. PARAGARD T 380A [Suspect]
     Active Substance: COPPER
     Indication: CONTRACEPTION
     Dates: start: 20161130

REACTIONS (5)
  - Device expulsion [Recovered/Resolved]
  - Vaginal discharge [Unknown]
  - Back pain [Unknown]
  - Menorrhagia [Unknown]
  - Vaginitis gardnerella [Unknown]

NARRATIVE: CASE EVENT DATE: 20170209
